FAERS Safety Report 23767695 (Version 1)
Quarter: 2024Q2

REPORT INFORMATION
  Report Type: Other
  Country: CN (occurrence: None)
  Receive Date: 20240422
  Receipt Date: 20240422
  Transmission Date: 20240715
  Serious: Yes (Death)
  Sender: FDA-Public Use
  Company Number: CN-ROCHE-3548333

PATIENT

DRUGS (13)
  1. RITUXIMAB [Suspect]
     Active Substance: RITUXIMAB
     Indication: Prophylaxis against transplant rejection
     Route: 065
  2. MYCOPHENOLATE MOFETIL [Suspect]
     Active Substance: MYCOPHENOLATE MOFETIL
     Indication: Prophylaxis against graft versus host disease
     Dosage: ON DAY -6, WHICH WAS DISCONTINUED ON DAY +28
     Route: 042
  3. DOXORUBICIN HYDROCHLORIDE [Suspect]
     Active Substance: DOXORUBICIN HYDROCHLORIDE
     Indication: Prophylaxis against transplant rejection
     Dosage: ON DAY 1
     Route: 065
  4. ETOPOSIDE [Suspect]
     Active Substance: ETOPOSIDE
     Indication: Prophylaxis against graft versus host disease
     Dosage: DISTRIBUTED OVER SIX DAYS FROM DAY -15 TO -10
     Route: 042
  5. BUSULFAN [Suspect]
     Active Substance: BUSULFAN
     Indication: Prophylaxis against graft versus host disease
     Dosage: DIVIDED INTO FOUR DAYS FROM DAY -9 TO -6
     Route: 042
  6. CYCLOPHOSPHAMIDE [Suspect]
     Active Substance: CYCLOPHOSPHAMIDE
     Indication: Prophylaxis against graft versus host disease
     Dosage: FOR FOUR DAYS FROM DAY -4 TO -3
     Route: 042
  7. FLUDARABINE [Suspect]
     Active Substance: FLUDARABINE PHOSPHATE
     Indication: Prophylaxis against graft versus host disease
     Dosage: FOR 3 DAYS FROM DAY -5 TO -3
     Route: 042
  8. LAPINE T-LYMPHOCYTE IMMUNE GLOBULIN [Suspect]
     Active Substance: LAPINE T-LYMPHOCYTE IMMUNE GLOBULIN
     Indication: Prophylaxis against graft versus host disease
     Dosage: 7.5-8.5MG/KG DIVIDED INTO FOUR DAYS, FROM DAY -5 TO -2
     Route: 042
  9. METHYLPREDNISOLONE [Suspect]
     Active Substance: METHYLPREDNISOLONE
     Indication: Prophylaxis against transplant rejection
     Dosage: ON DAYS 1-3, 2MG/KG ON DAYS 4-6, WITH A GRADUAL TAPER TO 0MG/KG ON DAYS 7-21)
     Route: 065
  10. RUXOLITINIB [Suspect]
     Active Substance: RUXOLITINIB
     Indication: Prophylaxis against transplant rejection
     Dosage: [2.5MG ADMINISTERED ORALLY TWICE DAILY (AGE {14 YEARS, WEIGHT {25 KG); 5MG ADMINISTERED ORALLY TWICE
     Route: 048
  11. TACROLIMUS [Suspect]
     Active Substance: TACROLIMUS
     Indication: Prophylaxis against graft versus host disease
     Dosage: 0.01 TO 0.05MG/KG/DAY, MAINTAINING SERUM LEVELS BETWEEN 4-6 NG/ML
     Route: 065
  12. CYCLOSPORINE [Suspect]
     Active Substance: CYCLOSPORINE
     Indication: Prophylaxis against graft versus host disease
     Dosage: 3MG/KG/DAY, MAINTAINING SERUM LEVELS BETWEEN 100-150 NG/ML WAS INITIATED ON DAY -6 AND GRADUALLY TAP
     Route: 065
  13. BASILIXIMAB [Suspect]
     Active Substance: BASILIXIMAB
     Indication: Prophylaxis against graft versus host disease
     Dosage: FOR PATIENTS WEIGHING OVER 20 KG, AND 10MG FOR THOSE WEIGHING UNDER 20 KG
     Route: 065

REACTIONS (3)
  - Cytomegalovirus infection [Fatal]
  - Cytomegalovirus infection reactivation [Unknown]
  - Epstein-Barr virus infection reactivation [Unknown]
